FAERS Safety Report 23673261 (Version 4)
Quarter: 2025Q2

REPORT INFORMATION
  Report Type: Report from Study
  Country: CA (occurrence: CA)
  Receive Date: 20240326
  Receipt Date: 20250401
  Transmission Date: 20250717
  Serious: Yes (Other)
  Sender: TAKEDA
  Company Number: CA-TAKEDA-2024TUS013090

PATIENT
  Sex: Male

DRUGS (5)
  1. VEDOLIZUMAB [Suspect]
     Active Substance: VEDOLIZUMAB
     Indication: Crohn^s disease
  2. METRONIDAZOLE [Suspect]
     Active Substance: METRONIDAZOLE
     Indication: Product used for unknown indication
  3. CIPROFLOXACIN [Suspect]
     Active Substance: CIPROFLOXACIN
     Indication: Product used for unknown indication
  4. CHOLESTYRAMINE [Concomitant]
     Active Substance: CHOLESTYRAMINE
     Dosage: UNK UNK, QD
  5. COLESEVELAM HYDROCHLORIDE [Concomitant]
     Active Substance: COLESEVELAM HYDROCHLORIDE
     Dosage: 3.75 GRAM, QD

REACTIONS (19)
  - Anastomotic ulcer [Unknown]
  - Malaise [Unknown]
  - Faeces soft [Unknown]
  - Diarrhoea [Unknown]
  - Frequent bowel movements [Unknown]
  - Abdominal discomfort [Unknown]
  - Fistula discharge [Unknown]
  - Defaecation urgency [Unknown]
  - Anal incontinence [Unknown]
  - Costovertebral angle tenderness [Unknown]
  - Anal pruritus [Unknown]
  - Anal skin tags [Unknown]
  - Inflammatory marker increased [Unknown]
  - Dermatitis contact [Unknown]
  - Rectal discharge [Unknown]
  - Feeling abnormal [Unknown]
  - Abdominal pain [Unknown]
  - Pruritus [Unknown]
  - Fatigue [Unknown]
